FAERS Safety Report 4342596-4 (Version None)
Quarter: 2004Q2

REPORT INFORMATION
  Report Type: 
  Country: None (occurrence: None)
  Receive Date: 20040416
  Receipt Date: 20040402
  Transmission Date: 20050107
  Serious: Yes (Death)
  Sender: FDA-Public Use
  Company Number: 2004AP00283

PATIENT
  Age: 68 Year
  Sex: Female

DRUGS (3)
  1. IRESSA [Suspect]
     Indication: NON-SMALL CELL LUNG CANCER
     Dosage: 250 MG DAILY
     Dates: start: 20031126, end: 20040112
  2. PACLITAXEL [Concomitant]
  3. CARBOPLATIN [Concomitant]

REACTIONS (11)
  - FUNGAEMIA [None]
  - GENERAL PHYSICAL HEALTH DETERIORATION [None]
  - HAEMOPTYSIS [None]
  - INTERSTITIAL LUNG DISEASE [None]
  - LOOSE STOOLS [None]
  - LUNG DISORDER [None]
  - LYMPHANGIOSIS CARCINOMATOSA [None]
  - PNEUMOCYSTIS CARINII PNEUMONIA [None]
  - PNEUMONIA [None]
  - RASH [None]
  - RESPIRATORY FAILURE [None]
